FAERS Safety Report 14845960 (Version 3)
Quarter: 2018Q3

REPORT INFORMATION
  Report Type: Spontaneous
  Country: US (occurrence: US)
  Receive Date: 20180504
  Receipt Date: 20180705
  Transmission Date: 20181010
  Serious: No
  Sender: FDA-Public Use
  Company Number: US-PFIZER INC-2018180464

PATIENT
  Age: 63 Year
  Sex: Female
  Weight: 93.42 kg

DRUGS (9)
  1. CATAPRES /00171101/ [Concomitant]
     Active Substance: CLONIDINE
     Dosage: UNK
     Dates: start: 20141120, end: 20150107
  2. METRONIDAZOLE. [Concomitant]
     Active Substance: METRONIDAZOLE
     Dosage: UNK
     Dates: start: 20141021, end: 20150107
  3. DOCETAXEL. [Suspect]
     Active Substance: DOCETAXEL
     Dosage: 75 MG/M2, CYCLIC (EVERY THREE WEEKS, FOR 4 CYCLES)
     Route: 048
     Dates: start: 20150107, end: 20150311
  4. PROMETHAZINE [Concomitant]
     Active Substance: PROMETHAZINE\PROMETHAZINE HYDROCHLORIDE
     Dosage: UNK
     Dates: start: 20141028, end: 20171111
  5. DOCETAXEL. [Suspect]
     Active Substance: DOCETAXEL
     Indication: BREAST CANCER METASTATIC
     Dosage: UNK
     Dates: start: 201501, end: 201504
  6. GAS?X [Concomitant]
     Active Substance: DIMETHICONE
     Dosage: UNK
     Dates: start: 20141028, end: 20151028
  7. METOPROLOL TARTRATE. [Concomitant]
     Active Substance: METOPROLOL TARTRATE
     Dosage: UNK
     Dates: start: 20141120, end: 20151110
  8. ELAVIL [Concomitant]
     Active Substance: AMITRIPTYLINE HYDROCHLORIDE
     Dosage: UNK
     Dates: start: 20141028, end: 20170805
  9. LISINOPRIL. [Concomitant]
     Active Substance: LISINOPRIL
     Dosage: UNK
     Dates: start: 20141120, end: 20151110

REACTIONS (5)
  - Madarosis [Not Recovered/Not Resolved]
  - Alopecia [Not Recovered/Not Resolved]
  - Hair texture abnormal [Not Recovered/Not Resolved]
  - Hair colour changes [Not Recovered/Not Resolved]
  - Hair disorder [Not Recovered/Not Resolved]

NARRATIVE: CASE EVENT DATE: 20150911
